FAERS Safety Report 6744039-X (Version None)
Quarter: 2010Q2

REPORT INFORMATION
  Report Type: 
  Country: None (occurrence: None)
  Receive Date: 20100527
  Receipt Date: 20100521
  Transmission Date: 20101027
  Serious: Yes (Hospitalization)
  Sender: FDA-Public Use
  Company Number: A0790866A

PATIENT
  Age: 64 Year
  Sex: Male
  Weight: 137.7 kg

DRUGS (11)
  1. AVANDIA [Suspect]
     Indication: DIABETES MELLITUS
     Dosage: 4MG TWICE PER DAY
     Route: 048
     Dates: start: 20050101, end: 20070702
  2. LIPITOR [Concomitant]
  3. FLONASE [Concomitant]
  4. HCTZ [Concomitant]
  5. TOPROL-XL [Concomitant]
  6. ZESTRIL [Concomitant]
  7. LORTAB [Concomitant]
  8. INSULIN [Concomitant]
  9. FLONASE [Concomitant]
  10. GLUCOTROL [Concomitant]
  11. CHANTIX [Concomitant]

REACTIONS (2)
  - CARDIAC FAILURE CONGESTIVE [None]
  - ISCHAEMIC CARDIOMYOPATHY [None]
